FAERS Safety Report 6553228-9 (Version None)
Quarter: 2010Q1

REPORT INFORMATION
  Report Type: 
  Country: None (occurrence: None)
  Receive Date: 20100127
  Receipt Date: 20090409
  Transmission Date: 20100710
  Serious: No
  Sender: FDA-Public Use
  Company Number: A0777891A

PATIENT
  Sex: Female

DRUGS (2)
  1. IMITREX [Suspect]
     Indication: MIGRAINE
     Route: 058
     Dates: start: 20090101
  2. BIRTH CONTROL [Concomitant]

REACTIONS (1)
  - FLUSHING [None]
